FAERS Safety Report 9384100 (Version 1)
Quarter: 2013Q3

REPORT INFORMATION
  Report Type: Report from Study
  Country: IT (occurrence: IT)
  Receive Date: 20130705
  Receipt Date: 20130705
  Transmission Date: 20140515
  Serious: Yes (Death)
  Sender: FDA-Public Use
  Company Number: IT-BRISTOL-MYERS SQUIBB COMPANY-19064088

PATIENT
  Age: 74 Year
  Sex: Female

DRUGS (4)
  1. CETUXIMAB [Suspect]
     Indication: COLORECTAL CANCER METASTATIC
     Dosage: 400 MG/M2. RECENT DOSE 10-MAY-2013
     Route: 042
     Dates: start: 20130503
  2. FLUOROURACIL [Suspect]
     Indication: COLORECTAL CANCER METASTATIC
     Dosage: RECENT DOSE 03-MAY-2013
     Route: 042
     Dates: start: 20130503
  3. IRINOTECAN HCL [Suspect]
     Indication: COLORECTAL CANCER METASTATIC
     Dosage: RECENT DOSE 03-MAY-2013
     Route: 042
     Dates: start: 20130503
  4. LACIREX [Concomitant]
     Indication: HYPERTENSION

REACTIONS (1)
  - Cardiac failure [Fatal]
